FAERS Safety Report 25755194 (Version 1)
Quarter: 2025Q3

REPORT INFORMATION
  Report Type: Spontaneous
  Country: US (occurrence: US)
  Receive Date: 20250903
  Receipt Date: 20250903
  Transmission Date: 20251021
  Serious: Yes (Hospitalization, Other)
  Sender: ALEMBIC
  Company Number: US-ALEMBIC PHARMACUETICALS LIMITED-2025SCAL001132

PATIENT

DRUGS (1)
  1. FLUOROURACIL [Suspect]
     Active Substance: FLUOROURACIL
     Indication: Colon cancer
     Route: 065

REACTIONS (10)
  - Arrhythmic storm [Recovered/Resolved]
  - Ventricular fibrillation [Recovered/Resolved]
  - Grimacing [Recovered/Resolved]
  - Electrocardiogram ST segment elevation [Recovered/Resolved]
  - Electrocardiogram abnormal [Recovered/Resolved]
  - Acidosis [Unknown]
  - Ventricular tachyarrhythmia [Recovered/Resolved]
  - Cardiac arrest [Recovered/Resolved]
  - Mental impairment [Recovered/Resolved]
  - Palpitations [Recovered/Resolved]
